FAERS Safety Report 5701522-3 (Version None)
Quarter: 2008Q2

REPORT INFORMATION
  Report Type: 
  Country: None (occurrence: None)
  Receive Date: 20080408
  Receipt Date: 20080326
  Transmission Date: 20081010
  Serious: Yes (Hospitalization)
  Sender: FDA-Public Use
  Company Number: US023109

PATIENT
  Age: 75 Year
  Sex: Male
  Weight: 86.1834 kg

DRUGS (4)
  1. PROVIGIL [Suspect]
     Dosage: ORAL
     Route: 048
  2. LITHIUM CARBONATE [Concomitant]
  3. CYMBALTA [Concomitant]
  4. TOPAMAX [Concomitant]

REACTIONS (3)
  - HAEMOGLOBIN DECREASED [None]
  - PLATELET COUNT DECREASED [None]
  - WHITE BLOOD CELL COUNT DECREASED [None]
